FAERS Safety Report 8309800-9 (Version None)
Quarter: 2012Q2

REPORT INFORMATION
  Report Type: 
  Country: None (occurrence: None)
  Receive Date: 20120425
  Receipt Date: 20120418
  Transmission Date: 20120825
  Serious: Yes (Other)
  Sender: FDA-Public Use
  Company Number: PHHY2012TR033237

PATIENT
  Age: 48 Year
  Sex: Male

DRUGS (4)
  1. ZOLEDRONIC [Suspect]
     Dosage: 4 MG, QMO
  2. VINCRISTINE + ADRIAMYCIN + DEXAMETHASONE [Concomitant]
     Dosage: VINCRISTINE 0.4 MG/DAY AND ADRIAMYCINE 9 MG/M2/DAY ON DAYS 1-4, ORAL DEXAMETHASONE 40 MG/DAY ON DAYS
  3. WARFARIN SODIUM [Concomitant]
     Dosage: UNK UKN, UNK
  4. WARFARIN SODIUM [Concomitant]
     Dosage: UNK UKN, UNK

REACTIONS (1)
  - OSTEONECROSIS OF JAW [None]
